FAERS Safety Report 5117136-2 (Version None)
Quarter: 2006Q3

REPORT INFORMATION
  Report Type: 
  Country: None (occurrence: None)
  Receive Date: 20060929
  Receipt Date: 20060920
  Transmission Date: 20061208
  Serious: Yes (Other)
  Sender: FDA-Public Use
  Company Number: US-ABBOTT-06P-163-0344955-00

PATIENT
  Age: 22 Year
  Sex: Female

DRUGS (3)
  1. DICUMAROL [Suspect]
     Indication: PERIPHERAL EMBOLISM
     Route: 050
     Dates: start: 19480101, end: 19480101
  2. DICUMAROL [Suspect]
     Route: 050
     Dates: start: 19480101
  3. DICUMAROL [Suspect]
     Route: 050
     Dates: start: 19480101

REACTIONS (2)
  - PETECHIAE [None]
  - STILLBIRTH [None]
